FAERS Safety Report 6520952-3 (Version None)
Quarter: 2009Q4

REPORT INFORMATION
  Report Type: 
  Country: None (occurrence: None)
  Receive Date: 20091229
  Receipt Date: 20091216
  Transmission Date: 20100525
  Serious: Yes (Other)
  Sender: FDA-Public Use
  Company Number: GB-AMGEN-US381747

PATIENT
  Sex: Female

DRUGS (5)
  1. ENBREL [Suspect]
     Indication: RHEUMATOID ARTHRITIS
     Route: 058
     Dates: start: 20020128, end: 20090628
  2. FOSAMAX [Concomitant]
     Dosage: UNKNOWN DOSE, ONCE A WEEK
     Route: 065
  3. PREDNISOLONE [Concomitant]
     Dosage: 4 MG, FREQUENCY UNKNOWN
     Route: 065
  4. METHOTREXATE [Concomitant]
     Route: 065
  5. FOLIC ACID [Concomitant]
     Dosage: 5 MG, FREQUENCY UNKNOWN
     Route: 065

REACTIONS (2)
  - BREAST CANCER [None]
  - UVEITIS [None]
